FAERS Safety Report 20483679 (Version 2)
Quarter: 2022Q1

REPORT INFORMATION
  Report Type: Other
  Country: US (occurrence: None)
  Receive Date: 20220217
  Receipt Date: 20220302
  Transmission Date: 20220423
  Serious: Yes (Death, Hospitalization, Other)
  Sender: FDA-Public Use
  Company Number: US-ROCHE-3026545

PATIENT
  Sex: Female

DRUGS (19)
  1. OCREVUS [Suspect]
     Active Substance: OCRELIZUMAB
     Indication: Multiple sclerosis
     Dosage: 300 MG DAY IV 300 MG DAY 15
     Route: 042
  2. AMPYRA [Concomitant]
     Active Substance: DALFAMPRIDINE
  3. VITAMIN D [Concomitant]
     Active Substance: VITAMIN D NOS
  4. PREDNISONE [Concomitant]
     Active Substance: PREDNISONE
  5. MELOXICAM [Concomitant]
     Active Substance: MELOXICAM
  6. METOPROLOL [Concomitant]
     Active Substance: METOPROLOL
  7. ASPIRIN [Concomitant]
     Active Substance: ASPIRIN
  8. METFORMIN [Concomitant]
     Active Substance: METFORMIN HYDROCHLORIDE
  9. TOPIRAMATE [Concomitant]
     Active Substance: TOPIRAMATE
  10. GLIPIZIDE [Concomitant]
     Active Substance: GLIPIZIDE
  11. TOVIAZ [Concomitant]
     Active Substance: FESOTERODINE FUMARATE
  12. TRAMADOL [Concomitant]
     Active Substance: TRAMADOL
  13. DEXAMETHASONE [Concomitant]
     Active Substance: DEXAMETHASONE
  14. ENOXAPARIN [Concomitant]
     Active Substance: ENOXAPARIN
  15. GUAIFENESIN [Concomitant]
     Active Substance: GUAIFENESIN
  16. REMDESIVIR [Concomitant]
     Active Substance: REMDESIVIR
  17. ACETAMINOPHEN [Concomitant]
     Active Substance: ACETAMINOPHEN
  18. BENZONATATE [Concomitant]
     Active Substance: BENZONATATE
  19. FENTANYL [Concomitant]
     Active Substance: FENTANYL

REACTIONS (4)
  - COVID-19 pneumonia [Fatal]
  - Cystitis [Fatal]
  - Respiratory failure [Unknown]
  - Sepsis [Unknown]
